FAERS Safety Report 7972770-7 (Version None)
Quarter: 2011Q4

REPORT INFORMATION
  Report Type: 
  Country: None (occurrence: None)
  Receive Date: 20111213
  Receipt Date: 20111210
  Transmission Date: 20120403
  Serious: No
  Sender: FDA-Public Use
  Company Number: US-PFIZER INC-2011301598

PATIENT
  Sex: Male
  Weight: 86.2 kg

DRUGS (4)
  1. RISPERIDONE [Concomitant]
     Indication: ANXIETY
     Dosage: 1 MG, DAILY
  2. WELLBUTRIN [Concomitant]
     Indication: ANXIETY
     Dosage: 150 MG, DAILY
  3. WELLBUTRIN [Concomitant]
     Indication: DEPRESSION
  4. LYRICA [Suspect]
     Indication: FIBROMYALGIA
     Dosage: 50 MG,DAILY
     Route: 048
     Dates: start: 20111208

REACTIONS (3)
  - DIZZINESS [None]
  - EUPHORIC MOOD [None]
  - SOMNOLENCE [None]
